FAERS Safety Report 9536254 (Version 3)
Quarter: 2019Q1

REPORT INFORMATION
  Report Type: Spontaneous
  Country: GB (occurrence: GB)
  Receive Date: 20130919
  Receipt Date: 20190325
  Transmission Date: 20190418
  Serious: Yes (Other)
  Sender: FDA-Public Use
  Company Number: GB-ACCORD-019500

PATIENT
  Age: 78 Year
  Sex: Male

DRUGS (5)
  1. TAFLUPROST [Concomitant]
     Active Substance: TAFLUPROST
     Indication: GLAUCOMA
     Route: 061
  2. AMLODIPINE [Suspect]
     Active Substance: AMLODIPINE BESYLATE
     Indication: HYPERTENSION
     Route: 065
  3. SIMVASTATIN. [Concomitant]
     Active Substance: SIMVASTATIN
     Route: 065
  4. TAFLUPROST/TIMOLOL [Concomitant]
     Indication: GLAUCOMA
     Route: 061
  5. ATENOLOL/ATENOLOL HYDROCHLORIDE [Concomitant]
     Route: 065

REACTIONS (1)
  - Pemphigoid [Recovered/Resolved]
